FAERS Safety Report 7748796-5 (Version None)
Quarter: 2011Q3

REPORT INFORMATION
  Report Type: 
  Country: None (occurrence: None)
  Receive Date: 20110913
  Receipt Date: 20110913
  Transmission Date: 20111222
  Serious: Yes (Hospitalization)
  Sender: FDA-Public Use
  Company Number: None

PATIENT
  Sex: Male
  Weight: 53.2 kg

DRUGS (8)
  1. METHOTREXATE [Suspect]
     Dosage: 30 MG
  2. DOXORUBICIN HYDROCHLORIDE [Suspect]
     Dosage: 92 MG
  3. ONCASPAR [Suspect]
     Dosage: 11475 UNIT
  4. PREDNISONE [Suspect]
     Dosage: 720 MG
  5. ZANTAC [Concomitant]
  6. ONCASPAR [Suspect]
     Dosage: 70 MG
  7. VINCRISTINE SULFATE [Suspect]
     Dosage: 8 MG
  8. BACTRIM [Concomitant]

REACTIONS (21)
  - BACK PAIN [None]
  - FEELING COLD [None]
  - ESCHERICHIA INFECTION [None]
  - CHEST PAIN [None]
  - SEPTIC SHOCK [None]
  - PULMONARY OEDEMA [None]
  - WHITE BLOOD CELL COUNT DECREASED [None]
  - EYE PAIN [None]
  - NEUTROPENIC SEPSIS [None]
  - PLATELET COUNT DECREASED [None]
  - ESCHERICHIA SEPSIS [None]
  - MENTAL STATUS CHANGES [None]
  - PROCEDURAL PAIN [None]
  - PLEURAL EFFUSION [None]
  - DYSPNOEA [None]
  - CHILLS [None]
  - HAEMATOMA [None]
  - BLOOD SODIUM DECREASED [None]
  - GENERAL PHYSICAL HEALTH DETERIORATION [None]
  - BONE MARROW FAILURE [None]
  - RESPIRATORY DISTRESS [None]
